FAERS Safety Report 8841961 (Version 5)
Quarter: 2013Q1

REPORT INFORMATION
  Report Type: Spontaneous
  Country: JP (occurrence: JP)
  Receive Date: 20121016
  Receipt Date: 20130318
  Transmission Date: 20140127
  Serious: Yes (Hospitalization)
  Sender: FDA-Public Use
  Company Number: PHHY2012JP090610

PATIENT
  Sex: 0

DRUGS (3)
  1. NEORAL [Suspect]
     Indication: SYSTEMIC LUPUS ERYTHEMATOSUS
     Route: 048
  2. NEORAL [Suspect]
     Indication: NEPHROTIC SYNDROME
  3. PREDNISOLONE [Suspect]
     Indication: SYSTEMIC LUPUS ERYTHEMATOSUS
     Dosage: 40 MG, PER DAY
     Dates: start: 201105

REACTIONS (5)
  - Hydronephrosis [Recovering/Resolving]
  - Abscess [Recovering/Resolving]
  - Retroperitoneal mass [Recovering/Resolving]
  - Abdominal distension [Unknown]
  - Back pain [Unknown]
